FAERS Safety Report 9452495 (Version 1)
Quarter: 2013Q3

REPORT INFORMATION
  Report Type: Report from Study
  Country: JP (occurrence: JP)
  Receive Date: 20130812
  Receipt Date: 20130812
  Transmission Date: 20140515
  Serious: Yes (Death)
  Sender: FDA-Public Use
  Company Number: JP-AMGEN-JPNCT2013056260

PATIENT
  Age: 81 Year
  Sex: Male
  Weight: 66 kg

DRUGS (13)
  1. DARBEPOETIN ALFA [Suspect]
     Indication: NEPHROGENIC ANAEMIA
     Dosage: 30 MUG, Q2WK
     Route: 058
     Dates: start: 20110729, end: 20110907
  2. DARBEPOETIN ALFA [Suspect]
     Dosage: 60 MUG, Q4WK
     Route: 058
     Dates: start: 20110921, end: 20120307
  3. DARBEPOETIN ALFA [Suspect]
     Dosage: 120 MUG, Q4WK
     Route: 058
     Dates: start: 20120406, end: 20120502
  4. DARBEPOETIN ALFA [Suspect]
     Dosage: 120 MUG, QD
     Route: 058
     Dates: start: 20120608, end: 20120608
  5. DARBEPOETIN ALFA [Suspect]
     Dosage: 120 MUG, Q4WK
     Route: 058
     Dates: start: 20120706, end: 20121127
  6. CONIEL [Concomitant]
     Dosage: UNK
     Route: 048
  7. IRBETAN [Concomitant]
     Dosage: UNK
     Route: 048
  8. SODIUM BICARBONATE [Concomitant]
     Dosage: UNK
     Route: 048
  9. ARGAMATE [Concomitant]
     Dosage: UNK
     Route: 048
  10. CARDENALIN [Concomitant]
     Dosage: UNK
     Route: 048
  11. PURSENNID [Concomitant]
     Dosage: UNK
     Route: 048
  12. PRECIPITATED CALCIUM CARBONATE [Concomitant]
     Dosage: UNK
     Route: 048
  13. FERROMIA [Concomitant]
     Dosage: UNK
     Route: 048

REACTIONS (1)
  - Squamous cell carcinoma of lung [Fatal]
